FAERS Safety Report 4393445-X (Version None)
Quarter: 2004Q3

REPORT INFORMATION
  Report Type: 
  Country: None (occurrence: None)
  Receive Date: 20040701
  Receipt Date: 20040616
  Transmission Date: 20050211
  Serious: Yes (Hospitalization, Other)
  Sender: FDA-Public Use
  Company Number: 2004039272

PATIENT
  Age: 84 Year
  Sex: Male

DRUGS (5)
  1. DOXAZOSIN (DOXAZOSIN) [Suspect]
     Indication: BENIGN PROSTATIC HYPERPLASIA
     Dosage: 8 MG (8 MG, 1 IN1 D), ORAL
     Route: 048
     Dates: start: 20031001, end: 20040101
  2. ATORVASTATIN CALCIUM [Concomitant]
  3. CARVEDILOL [Concomitant]
  4. GLYCERYL [Concomitant]
  5. ACENOCOUMAROL (ACENOCOUMAROL) [Concomitant]

REACTIONS (17)
  - ANAEMIA [None]
  - CREPITATIONS [None]
  - GASTROINTESTINAL HAEMORRHAGE [None]
  - HAEMATURIA [None]
  - HELICOBACTER INFECTION [None]
  - HEPATITIS B CORE ANTIGEN POSITIVE [None]
  - HEPATITIS B SURFACE ANTIGEN POSITIVE [None]
  - IDIOPATHIC THROMBOCYTOPENIC PURPURA [None]
  - KLEBSIELLA INFECTION [None]
  - LEUKOPENIA [None]
  - MEGAKARYOCYTES INCREASED [None]
  - ORAL MUCOSAL BLISTERING [None]
  - PAIN [None]
  - PNEUMONIA [None]
  - RECTAL HAEMORRHAGE [None]
  - SKIN BLEEDING [None]
  - STAPHYLOCOCCAL INFECTION [None]
